FAERS Safety Report 5067313-4 (Version None)
Quarter: 2006Q3

REPORT INFORMATION
  Report Type: 
  Country: None (occurrence: None)
  Receive Date: 20060714
  Receipt Date: 20060614
  Transmission Date: 20061208
  Serious: No
  Sender: FDA-Public Use
  Company Number: 2006SP002421

PATIENT
  Age: 45 Year
  Sex: Male

DRUGS (4)
  1. LUNESTA [Suspect]
     Indication: INSOMNIA
     Dosage: 2 MG;ORAL
     Route: 048
     Dates: start: 20060401, end: 20060501
  2. ATENOLOL [Concomitant]
  3. LEVOTHYROXINE SODIUM [Concomitant]
  4. VITAMINS [Concomitant]

REACTIONS (2)
  - AGITATION [None]
  - TREMOR [None]
